FAERS Safety Report 14803729 (Version 1)
Quarter: 2018Q2

REPORT INFORMATION
  Report Type: Spontaneous
  Country: US (occurrence: US)
  Receive Date: 20180425
  Receipt Date: 20180425
  Transmission Date: 20180711
  Serious: No
  Sender: FDA-Public Use
  Company Number: US-INSYS THERAPEUTICS, INC-INS201802-000068

PATIENT
  Sex: Male
  Weight: 114 kg

DRUGS (21)
  1. GENVOYA [Concomitant]
     Active Substance: COBICISTAT\ELVITEGRAVIR\EMTRICITABINE\TENOFOVIR ALAFENAMIDE FUMARATE
  2. PROAIR HFA [Concomitant]
     Active Substance: ALBUTEROL SULFATE
     Dates: start: 20161226
  3. MARINOL [Concomitant]
     Active Substance: DRONABINOL
     Dates: start: 20180205
  4. SYMBICORT [Concomitant]
     Active Substance: BUDESONIDE\FORMOTEROL FUMARATE DIHYDRATE
     Dates: start: 20121127
  5. VITAMIND2 [Concomitant]
     Route: 048
  6. CLONIDINE. [Concomitant]
     Active Substance: CLONIDINE
     Route: 048
     Dates: start: 20150720
  7. AMLODIPINE [Concomitant]
     Active Substance: AMLODIPINE BESYLATE
     Route: 048
     Dates: start: 20140317
  8. NEXIUM [Concomitant]
     Active Substance: ESOMEPRAZOLE MAGNESIUM
     Route: 048
     Dates: start: 20130125
  9. METOPROLOL TARTATE [Concomitant]
     Active Substance: METOPROLOL TARTRATE
  10. GENVOYA [Concomitant]
     Active Substance: COBICISTAT\ELVITEGRAVIR\EMTRICITABINE\TENOFOVIR ALAFENAMIDE FUMARATE
     Dates: start: 20170501
  11. LEVETIRACETAM. [Concomitant]
     Active Substance: LEVETIRACETAM
     Route: 048
  12. SYNDROS [Suspect]
     Active Substance: DRONABINOL
     Indication: DECREASED APPETITE
     Route: 048
     Dates: start: 20180111, end: 20180202
  13. AXIRON [Concomitant]
     Active Substance: TESTOSTERONE
     Route: 062
     Dates: start: 20150706
  14. GABAPENTIN. [Concomitant]
     Active Substance: GABAPENTIN
     Route: 048
     Dates: start: 20160526
  15. DRONABINOL. [Concomitant]
     Active Substance: DRONABINOL
     Route: 048
     Dates: start: 20171115, end: 20180315
  16. CLONAZEPAM. [Concomitant]
     Active Substance: CLONAZEPAM
  17. PREZISTA [Concomitant]
     Active Substance: DARUNAVIR ETHANOLATE
     Route: 048
     Dates: start: 20121127
  18. GENVOYA [Concomitant]
     Active Substance: COBICISTAT\ELVITEGRAVIR\EMTRICITABINE\TENOFOVIR ALAFENAMIDE FUMARATE
  19. CIALIS [Concomitant]
     Active Substance: TADALAFIL
     Route: 048
     Dates: start: 20150624
  20. BELSOMRA [Concomitant]
     Active Substance: SUVOREXANT
     Dates: start: 20171117, end: 20180317
  21. CRESTOR [Concomitant]
     Active Substance: ROSUVASTATIN CALCIUM
     Route: 048
     Dates: start: 20150824

REACTIONS (2)
  - Throat irritation [Unknown]
  - Product taste abnormal [Unknown]
